FAERS Safety Report 17283552 (Version 1)
Quarter: 2020Q1

REPORT INFORMATION
  Report Type: Spontaneous
  Country: US (occurrence: US)
  Receive Date: 20200117
  Receipt Date: 20200117
  Transmission Date: 20200409
  Serious: Yes (Disabling, Other)
  Sender: FDA-Public Use
  Company Number: None

PATIENT
  Age: 40 Year
  Sex: Female
  Weight: 60.75 kg

DRUGS (15)
  1. CIPROFLOXACIN HCL 500 MG [Suspect]
     Active Substance: CIPROFLOXACIN HYDROCHLORIDE
     Indication: KIDNEY INFECTION
     Dosage: ?          QUANTITY:1 TABLET(S);?
     Route: 048
     Dates: start: 20200109, end: 20200116
  2. PACEMAKER [Concomitant]
     Active Substance: DEVICE
  3. SALT [Concomitant]
     Active Substance: SODIUM CHLORIDE
  4. MODOFANIL [Concomitant]
  5. OXYCODONE [Concomitant]
     Active Substance: OXYCODONE
  6. PREDNISILONE [Concomitant]
  7. DMV [Concomitant]
  8. ZANAFLEX [Concomitant]
     Active Substance: TIZANIDINE HYDROCHLORIDE
  9. SPINAL CORD STIMULATOR [Concomitant]
  10. IMITREX [Concomitant]
     Active Substance: SUMATRIPTAN SUCCINATE
  11. COMPAZINE [Concomitant]
     Active Substance: PROCHLORPERAZINE MALEATE
  12. MIDODRINE [Concomitant]
     Active Substance: MIDODRINE
  13. METROPOLOL [Concomitant]
     Active Substance: METOPROLOL
  14. CALCIUM [Concomitant]
     Active Substance: CALCIUM
  15. CBD OIL [Concomitant]
     Active Substance: CANNABIDIOL\HERBALS

REACTIONS (8)
  - Neuralgia [None]
  - Nausea [None]
  - Abdominal distension [None]
  - Hyperaesthesia [None]
  - Dizziness [None]
  - Loss of consciousness [None]
  - Peripheral venous disease [None]
  - Pain [None]

NARRATIVE: CASE EVENT DATE: 20200109
